FAERS Safety Report 17420742 (Version 2)
Quarter: 2020Q1

REPORT INFORMATION
  Report Type: Spontaneous
  Country: JP (occurrence: JP)
  Receive Date: 20200214
  Receipt Date: 20200225
  Transmission Date: 20200409
  Serious: Yes (Hospitalization, Other)
  Sender: FDA-Public Use
  Company Number: JP-PFIZER INC-2019519840

PATIENT
  Age: 84 Year
  Sex: Female

DRUGS (1)
  1. CEFTRIAXONE SODIUM. [Suspect]
     Active Substance: CEFTRIAXONE SODIUM
     Indication: PNEUMONIA
     Dosage: 2 G, 1X/DAY
     Route: 042
     Dates: start: 2017, end: 2017

REACTIONS (3)
  - Pseudocholelithiasis [Recovered/Resolved]
  - Cholangitis [Unknown]
  - Cholecystitis [Unknown]

NARRATIVE: CASE EVENT DATE: 2017
